FAERS Safety Report 11392023 (Version 3)
Quarter: 2015Q3

REPORT INFORMATION
  Report Type: Spontaneous
  Country: FR (occurrence: FR)
  Receive Date: 20150818
  Receipt Date: 20150901
  Transmission Date: 20151125
  Serious: Yes (Death, Hospitalization, Other)
  Sender: FDA-Public Use
  Company Number: FR-PFIZER INC-2015270016

PATIENT
  Age: 61 Year
  Sex: Female
  Weight: 230 kg

DRUGS (12)
  1. NOVORAPID [Suspect]
     Active Substance: INSULIN ASPART
     Dosage: UNK
     Route: 058
     Dates: end: 20150722
  2. DIGOXIN NATIVELLE [Suspect]
     Active Substance: DIGOXIN
     Dosage: 0.25 MG, 1X/DAY
     Route: 048
  3. UVEDOSE [Concomitant]
     Active Substance: CHOLECALCIFEROL
     Dosage: UNK
     Route: 048
     Dates: end: 20150722
  4. NEURONTIN [Suspect]
     Active Substance: GABAPENTIN
     Dosage: 300 MG, 1X/DAY
     Route: 048
     Dates: end: 20150722
  5. ALDACTONE [Suspect]
     Active Substance: SPIRONOLACTONE
     Dosage: 50 MG, 1X/DAY
     Route: 048
  6. TOPALGIC [Suspect]
     Active Substance: TRAMADOL
     Dosage: 50 MG, 1X/DAY
     Route: 048
     Dates: end: 20150722
  7. LANTUS [Suspect]
     Active Substance: INSULIN GLARGINE
     Dosage: UNK
     Route: 058
     Dates: end: 20150722
  8. DIFFU-K [Suspect]
     Active Substance: POTASSIUM CHLORIDE
     Dosage: 600 MG, 1X/DAY
     Route: 048
     Dates: end: 20150722
  9. PREVISCAN [Suspect]
     Active Substance: FLUINDIONE
     Dosage: 20 MG, 1X/DAY
     Route: 048
     Dates: end: 20150722
  10. ACTISKENAN [Suspect]
     Active Substance: MORPHINE SULFATE
     Dosage: 20 MG, 1X/DAY
     Route: 048
  11. LASILIX [Suspect]
     Active Substance: FUROSEMIDE
     Dosage: 40 MG, 1X/DAY
     Route: 048
     Dates: end: 20150722
  12. MONICOR LP [Suspect]
     Active Substance: ISOSORBIDE MONONITRATE
     Dosage: 40 MG, 1X/DAY
     Route: 048
     Dates: end: 20150722

REACTIONS (15)
  - Hypoglycaemic coma [Fatal]
  - Hypoxia [Not Recovered/Not Resolved]
  - Hyperkalaemia [Unknown]
  - Suicidal ideation [Unknown]
  - Hyponatraemia [Not Recovered/Not Resolved]
  - White blood cell count increased [Unknown]
  - Overdose [Fatal]
  - Pneumonia aspiration [Unknown]
  - Hypercapnia [Not Recovered/Not Resolved]
  - Atrial fibrillation [Unknown]
  - Condition aggravated [Fatal]
  - Depression [Unknown]
  - Hypoglycaemia [Fatal]
  - Renal failure [Fatal]
  - Respiratory acidosis [Not Recovered/Not Resolved]

NARRATIVE: CASE EVENT DATE: 20150722
